FAERS Safety Report 13680018 (Version 2)
Quarter: 2017Q3

REPORT INFORMATION
  Report Type: Spontaneous
  Country: US (occurrence: US)
  Receive Date: 20170622
  Receipt Date: 20170810
  Transmission Date: 20171127
  Serious: Yes (Hospitalization)
  Sender: FDA-Public Use
  Company Number: US-SAOL THERAPEUTICS-2017SAO01066

PATIENT
  Age: 63 Year
  Sex: Female
  Weight: 56.69 kg

DRUGS (3)
  1. MORPHINE [Suspect]
     Active Substance: MORPHINE
     Dosage: 1.301 MG, \DAY
     Route: 037
  2. BACLOFEN. [Suspect]
     Active Substance: BACLOFEN
     Indication: MUSCLE SPASTICITY
  3. BACLOFEN. [Suspect]
     Active Substance: BACLOFEN
     Indication: PAIN
     Route: 037

REACTIONS (1)
  - Abscess [Unknown]

NARRATIVE: CASE EVENT DATE: 20170215
